FAERS Safety Report 17729329 (Version 1)
Quarter: 2020Q2

REPORT INFORMATION
  Report Type: Spontaneous
  Country: US (occurrence: US)
  Receive Date: 20200430
  Receipt Date: 20200430
  Transmission Date: 20200714
  Serious: Yes (Other)
  Sender: FDA-Public Use
  Company Number: US-AMNEAL PHARMACEUTICALS-2020-AMRX-01243

PATIENT
  Age: 37 Year
  Sex: Male

DRUGS (1)
  1. TRIAMCINOLONE ACETONIDE. [Suspect]
     Active Substance: TRIAMCINOLONE ACETONIDE
     Indication: NASAL SEPTAL OPERATION
     Dosage: UNK

REACTIONS (6)
  - Foreign body embolism [Recovered/Resolved]
  - Choroidal infarction [Recovered/Resolved]
  - Visual field defect [Not Recovered/Not Resolved]
  - Retinal artery occlusion [Recovered/Resolved]
  - Retinal artery embolism [Recovered/Resolved]
  - Visual impairment [Not Recovered/Not Resolved]
